FAERS Safety Report 21635885 (Version 3)
Quarter: 2023Q1

REPORT INFORMATION
  Report Type: Spontaneous
  Country: US (occurrence: US)
  Receive Date: 20221123
  Receipt Date: 20230108
  Transmission Date: 20230418
  Serious: No
  Sender: FDA-Public Use
  Company Number: US-JNJFOC-20221144683

PATIENT
  Sex: Male

DRUGS (1)
  1. XARELTO [Suspect]
     Active Substance: RIVAROXABAN
     Indication: Thrombosis
     Route: 048

REACTIONS (4)
  - Off label use [Unknown]
  - Product packaging quantity issue [Unknown]
  - Product label issue [Unknown]
  - Product coating issue [Unknown]
